FAERS Safety Report 23662410 (Version 1)
Quarter: 2024Q1

REPORT INFORMATION
  Report Type: Spontaneous
  Country: US (occurrence: US)
  Receive Date: 20240322
  Receipt Date: 20240322
  Transmission Date: 20240409
  Serious: Yes (Other)
  Sender: FDA-Public Use
  Company Number: US-BAYER-2024A037699

PATIENT
  Age: 5 Year
  Sex: Male

DRUGS (1)
  1. MIRALAX [Suspect]
     Active Substance: POLYETHYLENE GLYCOL 3350
     Dosage: 3 TO 6 TABLE SPOONS
     Route: 048
     Dates: start: 2019, end: 202402

REACTIONS (4)
  - Seizure [Not Recovered/Not Resolved]
  - Anxiety [Not Recovered/Not Resolved]
  - Tic [Not Recovered/Not Resolved]
  - Product administered to patient of inappropriate age [None]

NARRATIVE: CASE EVENT DATE: 20240224
